FAERS Safety Report 8049753 (Version 2)
Quarter: 2013Q1

REPORT INFORMATION
  Report Type: Report from Study
  Country: FR (occurrence: FR)
  Receive Date: 20110722
  Receipt Date: 20130306
  Transmission Date: 20140127
  Serious: Yes (Other)
  Sender: FDA-Public Use
  Company Number: FR-GENZYME-THYM-1002609

PATIENT
  Age: 62 Year
  Sex: Male

DRUGS (7)
  1. THYMOGLOBULINE [Suspect]
     Indication: BONE MARROW CONDITIONING REGIMEN
     Dosage: 2.5 MG/KG, QD
     Route: 042
     Dates: start: 201010
  2. EVOLTRA [Suspect]
     Indication: BONE MARROW CONDITIONING REGIMEN
     Dosage: 30 MG/M2, QD
     Route: 065
     Dates: start: 201010
  3. BUSILVEX [Suspect]
     Indication: BONE MARROW CONDITIONING REGIMEN
     Dosage: 3.2 MG/KG, QD
     Route: 042
     Dates: start: 201010
  4. CICLOSPORIN [Suspect]
     Indication: PRODUCT USED FOR UNKNOWN INDICATION
     Dosage: UNK
     Route: 065
  5. PREDNISONE [Suspect]
     Indication: PRODUCT USED FOR UNKNOWN INDICATION
     Dosage: UNK
     Route: 065
     Dates: start: 201010
  6. NEORAL [Concomitant]
     Indication: PROPHYLAXIS AGAINST GRAFT VERSUS HOST DISEASE
     Dosage: 3 MG/KG, QD
     Route: 065
  7. CORTANCYL [Concomitant]
     Indication: PRODUCT USED FOR UNKNOWN INDICATION
     Dosage: UNK
     Route: 065

REACTIONS (3)
  - Small intestinal perforation [Recovered/Resolved]
  - Diffuse large B-cell lymphoma [Recovered/Resolved]
  - Epstein-Barr virus infection [Recovered/Resolved]
